FAERS Safety Report 4490951-4 (Version None)
Quarter: 2004Q4

REPORT INFORMATION
  Report Type: 
  Country: None (occurrence: None)
  Receive Date: 20041027
  Receipt Date: 20041014
  Transmission Date: 20050328
  Serious: Yes (Hospitalization)
  Sender: FDA-Public Use
  Company Number: 2004237496ZA

PATIENT
  Age: 63 Year
  Sex: Female

DRUGS (2)
  1. BEXTRA [Suspect]
     Indication: BACK PAIN
     Dosage: 40 MG, QD, ORAL
     Route: 048
  2. ZIAC [Concomitant]

REACTIONS (1)
  - STEVENS-JOHNSON SYNDROME [None]
